FAERS Safety Report 6129866-4 (Version None)
Quarter: 2009Q1

REPORT INFORMATION
  Report Type: 
  Country: None (occurrence: None)
  Receive Date: 20090324
  Receipt Date: 20090318
  Transmission Date: 20090719
  Serious: Yes (Hospitalization, Other)
  Sender: FDA-Public Use
  Company Number: US-JNJFOC-20090304924

PATIENT
  Sex: Female

DRUGS (16)
  1. FENTANYL TRANSDERMAL SYSTEM [Suspect]
     Indication: MUSCLE SPASMS
     Dosage: 100 UH/HR + 100 UG/HR
     Route: 062
  2. FLEXERIL [Suspect]
     Indication: BACK PAIN
     Route: 048
  3. BACLOFEN [Concomitant]
     Indication: MUSCLE SPASMS
     Dosage: AS NEEDED
     Route: 048
  4. NEURONTIN [Concomitant]
     Indication: NEURALGIA
     Route: 048
  5. REMERON [Concomitant]
     Indication: SLEEP DISORDER THERAPY
     Dosage: AT NIGHT
     Route: 048
  6. XANAX [Concomitant]
     Indication: NERVOUSNESS
     Route: 048
  7. XANAX [Concomitant]
     Indication: SLEEP DISORDER THERAPY
     Dosage: 1/2 OF 1 MG TABLET AT NIGHT
     Route: 048
  8. ACTONEL [Concomitant]
     Indication: OSTEOPOROSIS
     Route: 048
  9. COUMADIN [Concomitant]
     Indication: THROMBOSIS
     Route: 048
  10. PRILOSEC [Concomitant]
     Indication: GASTROOESOPHAGEAL REFLUX DISEASE
     Route: 048
  11. PERCOCET [Concomitant]
     Indication: BREAKTHROUGH PAIN
     Dosage: 10-325 MG TABLETS 5 DAILY AS NEEDED
     Route: 048
  12. ZOLOFT [Concomitant]
     Indication: DEPRESSION
     Route: 048
  13. REBIF [Concomitant]
     Indication: MULTIPLE SCLEROSIS
     Route: 058
  14. BOTOX [Concomitant]
     Indication: MUSCLE SPASMS
     Dosage: AS NEEDED
     Route: 065
  15. VITAMIN B-12 [Concomitant]
     Route: 030
  16. VITAMIN D [Concomitant]
     Indication: VITAMIN D DEFICIENCY
     Route: 048

REACTIONS (5)
  - BACK INJURY [None]
  - INADEQUATE ANALGESIA [None]
  - SLEEP DISORDER [None]
  - SPINAL COMPRESSION FRACTURE [None]
  - THINKING ABNORMAL [None]
